FAERS Safety Report 6951811 (Version 5)
Quarter: 2015Q1

REPORT INFORMATION
  Report Type: Report from Study
  Country: JP (occurrence: JP)
  Receive Date: 20090325
  Receipt Date: 20150323
  Transmission Date: 20150721
  Serious: Yes (Death, Life-Threatening, Other)
  Sender: FDA-Public Use
  Company Number: JP-PFIZER INC-2009171745

PATIENT
  Age: 70 Year
  Sex: Male
  Weight: 60.7 kg

DRUGS (7)
  1. HYPEN [Concomitant]
     Active Substance: ETODOLAC
     Route: 048
     Dates: end: 20090210
  2. LENDORMIN [Concomitant]
     Active Substance: BROTIZOLAM
     Dosage: UNK
     Route: 048
     Dates: end: 20090210
  3. MAGLAX [Concomitant]
     Active Substance: MAGNESIUM OXIDE
     Route: 048
     Dates: end: 20090210
  4. MEDICON [Concomitant]
     Active Substance: DEXTROMETHORPHAN HYDROBROMIDE
     Route: 048
     Dates: end: 20090210
  5. SELBEX [Concomitant]
     Active Substance: TEPRENONE
     Route: 048
     Dates: end: 20090210
  6. SUTENT [Suspect]
     Active Substance: SUNITINIB MALATE
     Indication: RENAL CELL CARCINOMA
     Dosage: 50 MG, 1X/DAY
     Route: 048
     Dates: start: 20090126, end: 20090208
  7. DEXALTIN [Concomitant]
     Active Substance: DEXAMETHASONE
     Dosage: UNK
     Dates: start: 20090204, end: 20090211

REACTIONS (5)
  - Renal failure [Not Recovered/Not Resolved]
  - Platelet count decreased [Not Recovered/Not Resolved]
  - Anaemia [Recovered/Resolved]
  - Renal cell carcinoma [Fatal]
  - Disease progression [Fatal]

NARRATIVE: CASE EVENT DATE: 20090209
